FAERS Safety Report 24801119 (Version 2)
Quarter: 2025Q1

REPORT INFORMATION
  Report Type: Spontaneous
  Country: BR (occurrence: BR)
  Receive Date: 20250102
  Receipt Date: 20250130
  Transmission Date: 20250409
  Serious: Yes (Other)
  Sender: ABBVIE
  Company Number: BR-ABBOTT-2024A-1394809

PATIENT
  Sex: Female
  Weight: 48 kg

DRUGS (2)
  1. DIVALPROEX SODIUM [Suspect]
     Active Substance: DIVALPROEX SODIUM
     Indication: Anxiety
     Route: 048
     Dates: start: 20241224
  2. PAROXETINE HYDROCHLORIDE [Concomitant]
     Active Substance: PAROXETINE HYDROCHLORIDE
     Indication: Product used for unknown indication

REACTIONS (8)
  - Malaise [Unknown]
  - Dizziness [Recovered/Resolved]
  - Off label use [Unknown]
  - Haemorrhage [Recovered/Resolved]
  - Fall [Recovered/Resolved]
  - Near death experience [Unknown]
  - Mass [Recovered/Resolved]
  - Pruritus [Recovered/Resolved]

NARRATIVE: CASE EVENT DATE: 20241201
